FAERS Safety Report 16641705 (Version 1)
Quarter: 2019Q3

REPORT INFORMATION
  Report Type: Spontaneous
  Country: US (occurrence: US)
  Receive Date: 20190729
  Receipt Date: 20190729
  Transmission Date: 20191004
  Serious: Yes (Other)
  Sender: FDA-Public Use
  Company Number: US-BAYER-2019-137270

PATIENT
  Age: 30 Year
  Sex: Female

DRUGS (2)
  1. MIRENA [Suspect]
     Active Substance: LEVONORGESTREL
  2. MIRENA [Suspect]
     Active Substance: LEVONORGESTREL
     Dosage: 20 MCG/24HR, CONT
     Route: 015
     Dates: start: 20140910

REACTIONS (5)
  - Abortion early [None]
  - Drug ineffective [None]
  - Amenorrhoea [None]
  - Pregnancy with contraceptive device [None]
  - Haemorrhage in pregnancy [None]

NARRATIVE: CASE EVENT DATE: 20190629
